FAERS Safety Report 11857028 (Version 1)
Quarter: 2015Q4

REPORT INFORMATION
  Report Type: Report from Study
  Country: IN (occurrence: IN)
  Receive Date: 20151221
  Receipt Date: 20151221
  Transmission Date: 20160305
  Serious: Yes (Other)
  Sender: FDA-Public Use
  Company Number: IN-BAYER-2015-487023

PATIENT
  Age: 66 Year
  Sex: Female

DRUGS (1)
  1. NEXAVAR [Suspect]
     Active Substance: SORAFENIB
     Indication: HEPATOCELLULAR CARCINOMA
     Dosage: 800 MG,DAILY
     Route: 048
     Dates: start: 20150609, end: 201510

REACTIONS (2)
  - Hepatocellular carcinoma [None]
  - Diarrhoea [None]

NARRATIVE: CASE EVENT DATE: 2015
